FAERS Safety Report 5205560-9 (Version None)
Quarter: 2007Q1

REPORT INFORMATION
  Report Type: 
  Country: None (occurrence: None)
  Receive Date: 20070109
  Receipt Date: 20070103
  Transmission Date: 20070707
  Serious: Yes (Other)
  Sender: FDA-Public Use
  Company Number: 009763

PATIENT
  Sex: Female

DRUGS (4)
  1. MEDROXYPROGESTERONE [Suspect]
     Dosage: ORAL
     Route: 048
     Dates: start: 19880101, end: 20021001
  2. CYCRIN [Suspect]
     Dosage: ORAL
     Route: 048
     Dates: start: 19880101, end: 20020101
  3. PREMARIN [Suspect]
     Dosage: ORAL
     Route: 048
     Dates: start: 19880101, end: 20021001
  4. PROVERA [Suspect]
     Dosage: ORAL
     Route: 048
     Dates: start: 19880101, end: 20021001

REACTIONS (1)
  - BREAST CANCER FEMALE [None]
